FAERS Safety Report 8011705-8 (Version None)
Quarter: 2011Q4

REPORT INFORMATION
  Report Type: 
  Country: None (occurrence: None)
  Receive Date: 20111228
  Receipt Date: 20111221
  Transmission Date: 20120403
  Serious: Yes (Other)
  Sender: FDA-Public Use
  Company Number: PHEH2011US009961

PATIENT
  Sex: Female

DRUGS (1)
  1. TASIGNA [Suspect]
     Indication: CHRONIC MYELOID LEUKAEMIA
     Dosage: 300 MG, Q12H
     Route: 048
     Dates: start: 20111115

REACTIONS (5)
  - DYSPNOEA EXERTIONAL [None]
  - CONSTIPATION [None]
  - ASTHMA [None]
  - ALOPECIA [None]
  - OEDEMA PERIPHERAL [None]
